FAERS Safety Report 8807294 (Version 1)
Quarter: 2012Q4

REPORT INFORMATION
  Report Type: 
  Country: US (occurrence: US)
  Receive Date: 20120925
  Receipt Date: 20120925
  Transmission Date: 20130627
  Serious: Yes (Congenital Anomaly)
  Sender: FDA-Public Use
  Company Number: US-WATSON-2012-16344

PATIENT

DRUGS (1)
  1. SIMVASTATIN (WATSON LABORATORIES) [Suspect]
     Indication: PRODUCT USED FOR UNKNOWN INDICATION
     Dosage: 10 mg, unknown
     Route: 064

REACTIONS (12)
  - Limb malformation [Unknown]
  - Aplasia [Unknown]
  - Right aortic arch [Unknown]
  - Congenital spinal cord anomaly [Unknown]
  - Renal dysplasia [Unknown]
  - Ureterocele [Unknown]
  - Single umbilical artery [Unknown]
  - Enlarged clitoris [Unknown]
  - Congenital uterine anomaly [Unknown]
  - Vaginal disorder [Unknown]
  - VACTERL syndrome [Unknown]
  - Foetal exposure during pregnancy [Unknown]
